FAERS Safety Report 11937294 (Version 2)
Quarter: 2020Q4

REPORT INFORMATION
  Report Type: Spontaneous
  Country: GB (occurrence: GB)
  Receive Date: 20160121
  Receipt Date: 20201204
  Transmission Date: 20210113
  Serious: Yes (Congenital Anomaly, Other)
  Sender: FDA-Public Use
  Company Number: PHHY2016GB004103

PATIENT

DRUGS (5)
  1. VIDEX [Suspect]
     Active Substance: DIDANOSINE
     Indication: PRODUCT USED FOR UNKNOWN INDICATION
     Dosage: 400 MG, QD (MATERNAL DOSE :400 MG, QD)
     Route: 064
     Dates: start: 20040122, end: 200406
  2. RETROVIR [Suspect]
     Active Substance: ZIDOVUDINE
     Indication: PRODUCT USED FOR UNKNOWN INDICATION
     Dosage: 500 MG (MATERNAL DOSE :500 MG, QD)
     Route: 064
     Dates: start: 20000122, end: 200406
  3. NORVIR [Suspect]
     Active Substance: RITONAVIR
     Indication: PRODUCT USED FOR UNKNOWN INDICATION
     Dosage: 500 MG, QD  (MATERNAL DOSE :500 MG, QD)
     Route: 064
     Dates: start: 20000122
  4. VIRAMUNE [Suspect]
     Active Substance: NEVIRAPINE
     Indication: PRODUCT USED FOR UNKNOWN INDICATION
     Dosage: 400 MG, QD (MATERNAL DOSE: 400 MG)
     Route: 064
     Dates: start: 20000122, end: 200406
  5. SEBIVO [Suspect]
     Active Substance: TELBIVUDINE
     Indication: PRODUCT USED FOR UNKNOWN INDICATION
     Dosage: UNK (MATERNAL DOSE: UNK)
     Route: 064

REACTIONS (4)
  - Pulmonary hypoplasia [Unknown]
  - Congenital central nervous system anomaly [Unknown]
  - Brain malformation [Unknown]
  - Foetal exposure during pregnancy [Unknown]
